FAERS Safety Report 8488769-0 (Version None)
Quarter: 2012Q2

REPORT INFORMATION
  Report Type: 
  Country: None (occurrence: None)
  Receive Date: 20120626
  Receipt Date: 20120607
  Transmission Date: 20120825
  Serious: Yes (Death)
  Sender: FDA-Public Use
  Company Number: JP-20120034

PATIENT

DRUGS (2)
  1. 480 10ML (LIPIODOL ULTRA FLUIDE) (ETHIODIZED OIL) [Suspect]
     Indication: THERAPEUTIC EMBOLISATION
     Dosage: INTRA-ARTERIAL
     Route: 013
  2. N-BUTYL-2-CYANOACRYLATE (NBCA) (N-BUTYL-2-CYANOACRYLATE) [Suspect]
     Dosage: INTRA-ARTERIAL
     Route: 013

REACTIONS (2)
  - OFF LABEL USE [None]
  - MULTI-ORGAN FAILURE [None]
